FAERS Safety Report 4818350-3 (Version None)
Quarter: 2005Q4

REPORT INFORMATION
  Report Type: 
  Country: None (occurrence: None)
  Receive Date: 20051031
  Receipt Date: 20051015
  Transmission Date: 20060501
  Serious: Yes (Hospitalization)
  Sender: FDA-Public Use
  Company Number: 2005EU002359

PATIENT
  Age: 18 Year
  Sex: Male

DRUGS (13)
  1. PROGRAF [Suspect]
     Indication: RENAL TRANSPLANT
     Dosage: 5.00 MG, BID, ORAL
     Route: 048
     Dates: start: 20050816, end: 20050819
  2. PREDNISONE [Concomitant]
  3. QUAMATEL [Concomitant]
  4. APPROVEL (IRBESARTAN) [Concomitant]
  5. RAMIPRIL [Concomitant]
  6. BISOPROLOL FUMARATE [Concomitant]
  7. AGEN (AMLODIPINE BESILATE) [Concomitant]
  8. MILURIT [Concomitant]
  9. FUROSEMIDE [Concomitant]
  10. VEROSPIRON [Concomitant]
  11. BACTISUBTIL (BACILLUS SUBTILIS) [Concomitant]
  12. VITACALCIN (CALCIUM CARBONATE) [Concomitant]
  13. MAGNE-B6 (MAGNESIUM LACTATE) [Concomitant]

REACTIONS (1)
  - GASTROENTERITIS ESCHERICHIA COLI [None]
